FAERS Safety Report 4319689-0 (Version None)
Quarter: 2004Q1

REPORT INFORMATION
  Report Type: 
  Country: None (occurrence: None)
  Receive Date: 20040316
  Receipt Date: 20040301
  Transmission Date: 20041129
  Serious: Yes (Other)
  Sender: FDA-Public Use
  Company Number: US_0403101330

PATIENT
  Age: 57 Year
  Sex: Male
  Weight: 121 kg

DRUGS (1)
  1. HUMULIN 70/30 [Suspect]
     Indication: DIABETES MELLITUS
     Dosage: 100 U DAY
     Dates: start: 19890101

REACTIONS (1)
  - MYOCARDIAL INFARCTION [None]
